FAERS Safety Report 14799790 (Version 2)
Quarter: 2018Q2

REPORT INFORMATION
  Report Type: Spontaneous
  Country: FR (occurrence: FR)
  Receive Date: 20180424
  Receipt Date: 20180627
  Transmission Date: 20180711
  Serious: Yes (Other)
  Sender: FDA-Public Use
  Company Number: FR-JNJFOC-20180403317

PATIENT
  Age: 20 Year
  Sex: Female

DRUGS (2)
  1. ARIPIPRAZOLE. [Interacting]
     Active Substance: ARIPIPRAZOLE
     Indication: AUTISM SPECTRUM DISORDER
     Route: 065
  2. RISPERIDONE. [Suspect]
     Active Substance: RISPERIDONE
     Indication: AUTISM SPECTRUM DISORDER
     Route: 065

REACTIONS (9)
  - Anxiety [Unknown]
  - Product use in unapproved indication [Unknown]
  - Paradoxical drug reaction [Unknown]
  - Scar [Unknown]
  - Aggression [Unknown]
  - Off label use [Unknown]
  - Intentional self-injury [Unknown]
  - Agitation [Unknown]
  - Drug interaction [Unknown]
